FAERS Safety Report 6878415-1 (Version None)
Quarter: 2010Q2

REPORT INFORMATION
  Report Type: 
  Country: None (occurrence: None)
  Receive Date: 20100624
  Receipt Date: 20091014
  Transmission Date: 20101027
  Serious: Yes (Hospitalization, Other)
  Sender: FDA-Public Use
  Company Number: SOLV00209006071

PATIENT
  Age: 23 Year
  Sex: Female
  Weight: 100 kg

DRUGS (1)
  1. PROMETRIUM [Suspect]
     Indication: PROGESTERONE ABNORMAL
     Dosage: 200 MILLIGRAM (S) BID ORAL DAILY DOSE:  400 MILLIGRAM (S)
     Route: 048
     Dates: start: 20090824, end: 20090929

REACTIONS (2)
  - ABORTION SPONTANEOUS [None]
  - VAGINAL HAEMORRHAGE [None]
